FAERS Safety Report 6684246-8 (Version None)
Quarter: 2010Q2

REPORT INFORMATION
  Report Type: 
  Country: None (occurrence: None)
  Receive Date: 20100416
  Receipt Date: 20100406
  Transmission Date: 20101027
  Serious: Yes (Hospitalization)
  Sender: FDA-Public Use
  Company Number: US-AMGEN-US207470

PATIENT
  Age: 62 Year
  Sex: Female
  Weight: 108.5 kg

DRUGS (14)
  1. ETANERCEPT - PLACEBO [Suspect]
     Indication: RHEUMATOID ARTHRITIS
     Dates: start: 20061122
  2. METHOTREXATE [Suspect]
  3. HYDROXYCHLOROQUINE SULFATE [Suspect]
  4. SULFASALAZINE [Suspect]
  5. PREVACID [Concomitant]
  6. ATENOLOL [Concomitant]
  7. CLONIDINE [Concomitant]
  8. LIPITOR [Concomitant]
  9. METFORMIN HCL [Concomitant]
  10. ACCUPRIL [Concomitant]
  11. AMITRIPTYLINE HCL [Concomitant]
  12. HYDROCHLOROTHIAZIDE [Concomitant]
  13. IBUPROFEN [Concomitant]
  14. NOVOLIN 70/30 [Concomitant]

REACTIONS (3)
  - RASH PUSTULAR [None]
  - RENAL FAILURE [None]
  - RENAL FAILURE ACUTE [None]
